FAERS Safety Report 5988723-4 (Version None)
Quarter: 2008Q4

REPORT INFORMATION
  Report Type: 
  Country: None (occurrence: None)
  Receive Date: 20081210
  Receipt Date: 20081201
  Transmission Date: 20090506
  Serious: Yes (Other)
  Sender: FDA-Public Use
  Company Number: PHHY2008BR30272

PATIENT
  Sex: Female
  Weight: 79 kg

DRUGS (2)
  1. SLOW-K [Suspect]
     Indication: MUSCLE SPASMS
     Dosage: 2 SUGAR COATED TABLETS(600 MG)/DAY ONLY WHEN HAS CRAMPS
     Route: 048
     Dates: start: 20040101
  2. SLOW-K [Suspect]
     Indication: OFF LABEL USE

REACTIONS (5)
  - DISEASE PROGRESSION [None]
  - DRUG INEFFECTIVE [None]
  - FLUID RETENTION [None]
  - MUSCLE SPASMS [None]
  - POOR QUALITY DRUG ADMINISTERED [None]
